FAERS Safety Report 14740745 (Version 18)
Quarter: 2020Q3

REPORT INFORMATION
  Report Type: Spontaneous
  Country: IN (occurrence: IN)
  Receive Date: 20180410
  Receipt Date: 20200724
  Transmission Date: 20201102
  Serious: Yes (Hospitalization, Other)
  Sender: FDA-Public Use
  Company Number: IN-PFIZER INC-2017201870

PATIENT
  Age: 75 Year
  Sex: Female
  Weight: 83 kg

DRUGS (6)
  1. ZOLEDRONIC ACID [Concomitant]
     Active Substance: ZOLEDRONIC ACID
     Dosage: UNK, (3 MONTHLY DEFER IT BY 1 MONTH IN JAN. ?TO TAKE IF UREA CREAT AND CALCIUM IS OK)
  2. PALBACE [Suspect]
     Active Substance: PALBOCICLIB
     Indication: BREAST CANCER METASTATIC
     Dosage: 125 MG, 1X/DAY
     Route: 048
     Dates: start: 20170311, end: 201703
  3. PALBACE [Suspect]
     Active Substance: PALBOCICLIB
     Dosage: 100 MG, CYCLIC (3 WEEKS FOLLOWED BY 2WEEKS OFF)
     Route: 048
     Dates: start: 20170308
  4. PALBACE [Suspect]
     Active Substance: PALBOCICLIB
     Dosage: 100 MG, CYCLIC (DAILY, 3 WEEKS FOLLOWED BY 2 WEEKS OFF)
     Route: 048
     Dates: start: 201703, end: 201703
  5. FEMPRO [Concomitant]
     Active Substance: LETROZOLE
     Dosage: 2.5 MG, 1X/DAY
     Route: 048
     Dates: start: 20170311
  6. SHELCAL HD [Concomitant]
     Active Substance: CALCIUM CARBONATE\CHOLECALCIFEROL
     Dosage: UNK, 2X/DAY (500MG/500IU; 8 AM AND 8 PM)
     Dates: start: 20191223

REACTIONS (8)
  - Blood calcium decreased [Unknown]
  - White blood cell count decreased [Recovering/Resolving]
  - Neutropenia [Recovered/Resolved]
  - Hypertension [Unknown]
  - Platelet count decreased [Unknown]
  - Pain in extremity [Unknown]
  - Breath sounds abnormal [Unknown]
  - Dyspnoea exertional [Unknown]

NARRATIVE: CASE EVENT DATE: 2017
